FAERS Safety Report 8167087-4 (Version None)
Quarter: 2012Q1

REPORT INFORMATION
  Report Type: 
  Country: None (occurrence: None)
  Receive Date: 20120103
  Receipt Date: 20111019
  Transmission Date: 20120608
  Serious: Yes (Other)
  Sender: FDA-Public Use
  Company Number: AE-2011-002471

PATIENT
  Age: 56 Year
  Sex: Female
  Weight: 74.8435 kg

DRUGS (5)
  1. BUPROPION HCL [Concomitant]
  2. PEGASYS [Concomitant]
  3. RIBAVIRIN [Concomitant]
  4. SEROQUEL ER (QUETIAPINE FUMARATE) [Concomitant]
  5. INCIVEK [Suspect]
     Dosage: 2250 MG (750 MG, 1 IN 8 HR)
     Dates: start: 20110901, end: 20111013

REACTIONS (2)
  - DRUG INEFFECTIVE [None]
  - ANAEMIA [None]
